FAERS Safety Report 11537481 (Version 1)
Quarter: 2015Q3

REPORT INFORMATION
  Report Type: Spontaneous
  Country: US (occurrence: US)
  Receive Date: 20150922
  Receipt Date: 20150922
  Transmission Date: 20151125
  Serious: No
  Sender: FDA-Public Use
  Company Number: US-PFIZER INC-2015312360

PATIENT
  Age: 57 Year
  Sex: Female
  Weight: 57 kg

DRUGS (4)
  1. RING [Suspect]
     Active Substance: ASCORBIC ACID\ASPIRIN\CAFFEINE\CODEINE\SALICYLAMIDE
     Dosage: UNK
     Dates: start: 20150910, end: 201509
  2. PREMARIN [Suspect]
     Active Substance: ESTROGENS, CONJUGATED
     Dosage: DAILY, EVERY NIGHT
     Route: 067
     Dates: start: 20150914
  3. PREMARIN [Suspect]
     Active Substance: ESTROGENS, CONJUGATED
     Indication: VULVOVAGINAL DRYNESS
     Dosage: 1 G, 2X/WEEK
     Route: 067
     Dates: start: 201508, end: 20150907
  4. PREMARIN [Suspect]
     Active Substance: ESTROGENS, CONJUGATED
     Dosage: UNK
     Route: 067
     Dates: start: 20150912

REACTIONS (3)
  - Bacterial vaginosis [Recovered/Resolved]
  - Drug effect incomplete [Not Recovered/Not Resolved]
  - Vulvovaginal burning sensation [Unknown]

NARRATIVE: CASE EVENT DATE: 2015
